FAERS Safety Report 7141965-7 (Version None)
Quarter: 2010Q4

REPORT INFORMATION
  Report Type: 
  Country: None (occurrence: None)
  Receive Date: 20101207
  Receipt Date: 20101124
  Transmission Date: 20110411
  Serious: Yes (Hospitalization)
  Sender: FDA-Public Use
  Company Number: A0803360A

PATIENT
  Age: 68 Year
  Sex: Female
  Weight: 95.5 kg

DRUGS (1)
  1. AVANDIA [Suspect]
     Dosage: 4MG PER DAY
     Route: 048
     Dates: start: 20010117, end: 20051022

REACTIONS (3)
  - CARDIAC FAILURE CONGESTIVE [None]
  - FRACTURE [None]
  - MYOCARDIAL INFARCTION [None]
